FAERS Safety Report 8508530-8 (Version None)
Quarter: 2012Q3

REPORT INFORMATION
  Report Type: 
  Country: None (occurrence: None)
  Receive Date: 20120713
  Receipt Date: 20120711
  Transmission Date: 20120928
  Serious: Yes (Death)
  Sender: FDA-Public Use
  Company Number: US-PFIZER INC-2012167666

PATIENT
  Sex: Male

DRUGS (1)
  1. RAPAMUNE [Suspect]
     Indication: GASTROINTESTINAL STROMAL TUMOUR
     Dosage: 2 MG, 1X/DAY
     Dates: start: 20120516

REACTIONS (2)
  - COLON CANCER [None]
  - DISEASE PROGRESSION [None]
